FAERS Safety Report 4536795-6 (Version None)
Quarter: 2004Q4

REPORT INFORMATION
  Report Type: 
  Country: None (occurrence: None)
  Receive Date: 20041220
  Receipt Date: 20041216
  Transmission Date: 20050328
  Serious: Yes (Hospitalization)
  Sender: FDA-Public Use
  Company Number: 200413330GDS

PATIENT
  Age: 85 Year
  Sex: Female

DRUGS (5)
  1. ASPIRIN [Suspect]
     Indication: CEREBRAL INFARCTION
     Dosage: 100 MG, TOTAL DAILY, ORAL
     Route: 048
     Dates: start: 20041104, end: 20041106
  2. MICARDIS [Suspect]
     Indication: HYPERTENSION
     Dosage: 20 MG, TOTAL DAILY, ORAL
     Route: 048
     Dates: start: 20041104, end: 20041106
  3. GLYCEOL [Concomitant]
  4. NICHOLIN [Concomitant]
  5. UNASYN [Concomitant]

REACTIONS (1)
  - HEPATIC FUNCTION ABNORMAL [None]
